FAERS Safety Report 18190713 (Version 2)
Quarter: 2021Q1

REPORT INFORMATION
  Report Type: Spontaneous
  Country: US (occurrence: US)
  Receive Date: 20200824
  Receipt Date: 20210302
  Transmission Date: 20210419
  Serious: Yes (Hospitalization, Other)
  Sender: FDA-Public Use
  Company Number: US-ASTRAZENECA-2020SF05041

PATIENT
  Age: 59 Year
  Sex: Female
  Weight: 80.3 kg

DRUGS (61)
  1. DICYCLOMINE [Concomitant]
     Active Substance: DICYCLOMINE HYDROCHLORIDE
  2. CRESTOR [Concomitant]
     Active Substance: ROSUVASTATIN CALCIUM
  3. NYSTOP [Concomitant]
     Active Substance: NYSTATIN
  4. LORAZEPAM. [Concomitant]
     Active Substance: LORAZEPAM
  5. ONDANSETRON [Concomitant]
     Active Substance: ONDANSETRON
  6. WARFARIN [Concomitant]
     Active Substance: WARFARIN
  7. GABAPENTIN. [Concomitant]
     Active Substance: GABAPENTIN
  8. CARTIA [Concomitant]
  9. TRAZODONE [Concomitant]
     Active Substance: TRAZODONE HYDROCHLORIDE
  10. XARELTO [Concomitant]
     Active Substance: RIVAROXABAN
  11. LYRICA [Concomitant]
     Active Substance: PREGABALIN
  12. SENNA [Concomitant]
     Active Substance: SENNA LEAF\SENNOSIDES\SENNOSIDES A AND B
  13. IBUPROFEN. [Concomitant]
     Active Substance: IBUPROFEN
  14. PROAIR HFA [Concomitant]
     Active Substance: ALBUTEROL SULFATE
  15. HYDROMORPHONE [Concomitant]
     Active Substance: HYDROMORPHONE
  16. TOPIMAX [Concomitant]
  17. AZITHROMYCIN ANHYDROUS. [Concomitant]
     Active Substance: AZITHROMYCIN ANHYDROUS
  18. CETRIZINE [Concomitant]
     Active Substance: CETIRIZINE HYDROCHLORIDE
  19. SULFA [Concomitant]
     Active Substance: UNSPECIFIED INGREDIENT
  20. TIZANIDINE. [Concomitant]
     Active Substance: TIZANIDINE
  21. PAROXETINE. [Concomitant]
     Active Substance: PAROXETINE
  22. NOVOLOG [Concomitant]
     Active Substance: INSULIN ASPART
  23. ENOXAPARIN [Concomitant]
     Active Substance: ENOXAPARIN
  24. AMLODIPINE [Concomitant]
     Active Substance: AMLODIPINE BESYLATE
  25. PREDNISONE. [Concomitant]
     Active Substance: PREDNISONE
  26. NEXIUM [Suspect]
     Active Substance: ESOMEPRAZOLE MAGNESIUM
     Indication: GASTROOESOPHAGEAL REFLUX DISEASE
     Route: 048
     Dates: start: 2004, end: 2019
  27. NEXIUM [Suspect]
     Active Substance: ESOMEPRAZOLE MAGNESIUM
     Indication: GASTROOESOPHAGEAL REFLUX DISEASE
     Route: 048
     Dates: start: 2004, end: 2019
  28. TRAMADOL. [Concomitant]
     Active Substance: TRAMADOL
  29. LANTUS [Concomitant]
     Active Substance: INSULIN GLARGINE
  30. SERTRALINE [Concomitant]
     Active Substance: SERTRALINE HYDROCHLORIDE
  31. LISINOPRIL. [Concomitant]
     Active Substance: LISINOPRIL
  32. LEVOFLOX [Concomitant]
     Active Substance: LEVOFLOXACIN
  33. CYMBALTA [Concomitant]
     Active Substance: DULOXETINE HYDROCHLORIDE
  34. MORPHINE [Concomitant]
     Active Substance: MORPHINE
  35. LIDOCAINE. [Concomitant]
     Active Substance: LIDOCAINE
  36. AMBIEN [Concomitant]
     Active Substance: ZOLPIDEM TARTRATE
  37. MELOXICAM. [Concomitant]
     Active Substance: MELOXICAM
  38. HYDROCODONE [Concomitant]
     Active Substance: HYDROCODONE
  39. CLONIDINE. [Concomitant]
     Active Substance: CLONIDINE
  40. CELEBREX [Concomitant]
     Active Substance: CELECOXIB
  41. DETROL [Concomitant]
     Active Substance: TOLTERODINE TARTRATE
  42. VYTORIN [Concomitant]
     Active Substance: EZETIMIBE\SIMVASTATIN
  43. ROZEREM [Concomitant]
     Active Substance: RAMELTEON
  44. DICLO [Concomitant]
     Active Substance: DICLOFENAC SODIUM
  45. ASPIRIN. [Concomitant]
     Active Substance: ASPIRIN
  46. NEXIUM [Suspect]
     Active Substance: ESOMEPRAZOLE MAGNESIUM
     Indication: GASTROOESOPHAGEAL REFLUX DISEASE
     Route: 048
     Dates: start: 20110621
  47. FUROSEMIDE. [Concomitant]
     Active Substance: FUROSEMIDE
  48. OXYBUTYNIN. [Concomitant]
     Active Substance: OXYBUTYNIN CHLORIDE
  49. CIPRO [Concomitant]
     Active Substance: CIPROFLOXACIN HYDROCHLORIDE
  50. FOLIC ACID. [Concomitant]
     Active Substance: FOLIC ACID
  51. FERROUS SULFATE. [Concomitant]
     Active Substance: FERROUS SULFATE
  52. PENICILIN [Concomitant]
  53. METFORMIN [Concomitant]
     Active Substance: METFORMIN HYDROCHLORIDE
  54. ROPINIROLE. [Concomitant]
     Active Substance: ROPINIROLE
  55. FLUCONAZOLE. [Concomitant]
     Active Substance: FLUCONAZOLE
  56. URIBEL [Concomitant]
     Active Substance: HYOSCYAMINE SULFATE\METHENAMINE\METHYLENE BLUE\PHENYL SALICYLATE\SODIUM PHOSPHATE, MONOBASIC, MONOHYDRATE
  57. PROMETHAZINE [Concomitant]
     Active Substance: PROMETHAZINE HYDROCHLORIDE
  58. GLIPIZIDE. [Concomitant]
     Active Substance: GLIPIZIDE
  59. HYDROXYZINE [Concomitant]
     Active Substance: HYDROXYZINE HYDROCHLORIDE
  60. AVELOX [Concomitant]
     Active Substance: MOXIFLOXACIN HYDROCHLORIDE
  61. COLACE [Concomitant]
     Active Substance: DOCUSATE SODIUM

REACTIONS (3)
  - Acute kidney injury [Not Recovered/Not Resolved]
  - Renal failure [Unknown]
  - Chronic kidney disease [Not Recovered/Not Resolved]

NARRATIVE: CASE EVENT DATE: 2013
